FAERS Safety Report 12613703 (Version 1)
Quarter: 2016Q3

REPORT INFORMATION
  Report Type: Spontaneous
  Country: PT (occurrence: PT)
  Receive Date: 20160802
  Receipt Date: 20160802
  Transmission Date: 20161109
  Serious: Yes (Other)
  Sender: FDA-Public Use
  Company Number: PT-FRESENIUS KABI-FK201604941

PATIENT
  Age: 17 Year
  Sex: Female

DRUGS (7)
  1. RIFAMPICIN [Suspect]
     Active Substance: RIFAMPIN
     Indication: TUBERCULOSIS
  2. PYRIDOXINE (MANUFACTURER UNKNOWN) [Suspect]
     Active Substance: PYRIDOXINE
     Indication: TUBERCULOSIS
     Route: 048
  3. ISONIAZID (MANUFACTURER UNKNOWN) [Suspect]
     Active Substance: ISONIAZID
     Route: 048
  4. RIFAMPICIN [Suspect]
     Active Substance: RIFAMPIN
     Route: 048
  5. PYRAZINAMIDE. [Suspect]
     Active Substance: PYRAZINAMIDE
     Indication: TUBERCULOSIS
     Route: 048
  6. PYRIDOXINE (MANUFACTURER UNKNOWN) [Suspect]
     Active Substance: PYRIDOXINE
     Route: 048
  7. ISONIAZID (MANUFACTURER UNKNOWN) [Suspect]
     Active Substance: ISONIAZID
     Indication: TUBERCULOSIS
     Route: 048

REACTIONS (3)
  - Thrombocytopenia [Unknown]
  - Photosensitivity reaction [Unknown]
  - Menstruation irregular [Unknown]
